FAERS Safety Report 11536858 (Version 4)
Quarter: 2015Q4

REPORT INFORMATION
  Report Type: Report from Study
  Country: US (occurrence: US)
  Receive Date: 20150922
  Receipt Date: 20151112
  Transmission Date: 20160304
  Serious: Yes (Hospitalization)
  Sender: FDA-Public Use
  Company Number: US-ACTELION-A-NJ2015-124448

PATIENT
  Age: 69 Year
  Sex: Male

DRUGS (3)
  1. OPSUMIT [Suspect]
     Active Substance: MACITENTAN
     Indication: PULMONARY HYPERTENSION
     Dosage: 10 MG, QD
     Route: 048
     Dates: start: 201402
  2. ADCIRCA [Concomitant]
     Active Substance: TADALAFIL
  3. VENTAVIS [Suspect]
     Active Substance: ILOPROST
     Indication: PULMONARY HYPERTENSION
     Dosage: 5 MCG, 6-8X DAY
     Route: 055
     Dates: start: 20150817

REACTIONS (6)
  - Peripheral artery bypass [Unknown]
  - Wound infection [Unknown]
  - Poor peripheral circulation [Recovering/Resolving]
  - Hypotension [Unknown]
  - Groin abscess [Unknown]
  - Peripheral arterial occlusive disease [Recovering/Resolving]

NARRATIVE: CASE EVENT DATE: 201509
